FAERS Safety Report 8274224-X (Version None)
Quarter: 2012Q2

REPORT INFORMATION
  Report Type: 
  Country: None (occurrence: None)
  Receive Date: 20120411
  Receipt Date: 20120402
  Transmission Date: 20120825
  Serious: Yes (Hospitalization, Disabling)
  Sender: FDA-Public Use
  Company Number: BR-ASTRAZENECA-2011SE38294

PATIENT
  Age: 61 Year
  Sex: Female
  Weight: 74 kg

DRUGS (6)
  1. TENORETIC 100 [Suspect]
     Indication: HYPERTENSION
     Route: 048
     Dates: start: 19900101, end: 20040101
  2. ATACAND [Suspect]
     Route: 048
     Dates: start: 20090101, end: 20110301
  3. ATACAND HCT [Suspect]
     Indication: HYPERTENSION
     Dosage: 16/12.5 MG ONCE DAILY
     Route: 048
     Dates: start: 20111001
  4. OMEPRAZOLE [Concomitant]
     Indication: HIATUS HERNIA
     Route: 048
  5. ATACAND [Suspect]
     Indication: HYPERTENSION
     Route: 048
     Dates: start: 20040101, end: 20090101
  6. OMEPRAZOLE [Concomitant]
     Indication: GASTROOESOPHAGEAL REFLUX DISEASE
     Route: 048

REACTIONS (10)
  - WEIGHT INCREASED [None]
  - BLOOD PRESSURE INCREASED [None]
  - ARRHYTHMIA [None]
  - BLOOD PRESSURE INADEQUATELY CONTROLLED [None]
  - EXTRASYSTOLES [None]
  - BRADYCARDIA [None]
  - DRUG INEFFECTIVE [None]
  - ATRIAL FIBRILLATION [None]
  - FOOT FRACTURE [None]
  - ANXIETY [None]
